FAERS Safety Report 21524472 (Version 1)
Quarter: 2022Q4

REPORT INFORMATION
  Report Type: Spontaneous
  Country: DE (occurrence: DE)
  Receive Date: 20221029
  Receipt Date: 20221029
  Transmission Date: 20230112
  Serious: Yes (Life-Threatening, Congenital Anomaly)
  Sender: FDA-Public Use
  Company Number: DE-EMBRYOTOX-202100111-B

PATIENT
  Age: 1 Day
  Sex: Male

DRUGS (5)
  1. AMLODIPINE\HYDROCHLOROTHIAZIDE\VALSARTAN [Suspect]
     Active Substance: AMLODIPINE\HYDROCHLOROTHIAZIDE\VALSARTAN
     Indication: Accidental exposure to product
     Dosage: CONFUSION WITH OTHER DRUG
     Route: 065
  2. XIPAMIDE [Concomitant]
     Active Substance: XIPAMIDE
     Indication: Hypertension
     Dosage: 10 MILLIGRAM DAILY; 10 [MG/D ], DURATION : 157 DAYS
     Dates: start: 20200731, end: 20210104
  3. METOPROLOL [Concomitant]
     Active Substance: METOPROLOL
     Indication: Hypertension
     Dosage: 95 [MG/D ] 2 SEPARATED DOSES, UNIT DOSE: 95 MG, FREQUENCY TIME : 1 DAY, DURATION : 207 DAYS
     Dates: start: 20200731, end: 20210223
  4. METHYLDOPA [Concomitant]
     Active Substance: METHYLDOPA
     Indication: Hypertension
     Dosage: 500 [MG/D (2X250) ], UNIT DOSE: 500 MG, FREQUENCY TIME : 1 DAY, DURATION : 16 DAYS
     Dates: start: 20210330, end: 20210415
  5. AMLODIPIN/VALSARTAN/HYDROCHLOROTHIAZID [Concomitant]
     Indication: Hypertension
     Dosage: 5 [MG/D ] / 160 [MG/D ] / 12.5 [MG/D ]

REACTIONS (3)
  - Congenital renal disorder [Not Recovered/Not Resolved]
  - Product confusion [Unknown]
  - Foetal exposure during pregnancy [Unknown]

NARRATIVE: CASE EVENT DATE: 20210401
